FAERS Safety Report 24528428 (Version 1)
Quarter: 2024Q4

REPORT INFORMATION
  Report Type: Spontaneous
  Country: TW (occurrence: TW)
  Receive Date: 20241021
  Receipt Date: 20241021
  Transmission Date: 20250114
  Serious: Yes (Death, Hospitalization, Other)
  Sender: EPIC PHARM
  Company Number: TW-EPICPHARMA-TW-2024EPCLIT01271

PATIENT
  Age: 82 Year
  Sex: Female

DRUGS (19)
  1. FAMOTIDINE [Suspect]
     Active Substance: FAMOTIDINE
     Indication: Abdominal discomfort
     Route: 065
  2. QUETIAPINE [Suspect]
     Active Substance: QUETIAPINE
     Indication: Mental disorder
     Route: 065
  3. AMLODIPINE [Concomitant]
     Active Substance: AMLODIPINE BESYLATE
     Indication: Hypertension
     Route: 065
  4. ACETAMINOPHEN [Concomitant]
     Active Substance: ACETAMINOPHEN
     Route: 065
  5. FOLIC ACID [Concomitant]
     Active Substance: FOLIC ACID
     Indication: Anaemia
     Route: 065
  6. METHOXY POLYETHYLENE GLYCOL-EPOETIN BETA [Concomitant]
     Active Substance: METHOXY POLYETHYLENE GLYCOL-EPOETIN BETA
     Indication: Anaemia
     Route: 065
  7. FERROUS CITRATE [Concomitant]
     Active Substance: FERROUS CITRATE
     Indication: Anaemia
     Route: 065
  8. SODIUM BICARBONATE [Concomitant]
     Active Substance: SODIUM BICARBONATE
     Indication: Chronic kidney disease
     Route: 065
  9. ACETAMINOPHEN\TRAMADOL HYDROCHLORIDE [Concomitant]
     Active Substance: ACETAMINOPHEN\TRAMADOL HYDROCHLORIDE
     Route: 065
  10. CHLORHEXIDINE [Concomitant]
     Active Substance: CHLORHEXIDINE
     Route: 065
  11. BACITRACIN [Concomitant]
     Active Substance: BACITRACIN
     Indication: Antibiotic therapy
     Route: 065
  12. NEOMYCIN [Concomitant]
     Active Substance: NEOMYCIN
     Indication: Antibiotic therapy
     Route: 065
  13. NEOMYCIN [Concomitant]
     Active Substance: NEOMYCIN
     Route: 065
  14. POLYMYXIN B [Concomitant]
     Active Substance: POLYMYXIN B
     Indication: Antibiotic therapy
     Route: 065
  15. FUROSEMIDE [Concomitant]
     Active Substance: FUROSEMIDE
     Indication: Generalised oedema
     Route: 065
  16. FUSIDIC ACID [Concomitant]
     Active Substance: FUSIDIC ACID
     Indication: Blister
     Route: 065
  17. SILVER SULFADIAZINE [Concomitant]
     Active Substance: SILVER SULFADIAZINE
     Route: 065
  18. HALOPERIDOL [Concomitant]
     Active Substance: HALOPERIDOL
     Indication: Product used for unknown indication
     Route: 065
  19. MORPHINE [Concomitant]
     Active Substance: MORPHINE
     Indication: Product used for unknown indication
     Route: 065

REACTIONS (1)
  - SJS-TEN overlap [Fatal]
